FAERS Safety Report 10181310 (Version 1)
Quarter: 2014Q2

REPORT INFORMATION
  Report Type: Spontaneous
  Country: US (occurrence: US)
  Receive Date: 20140519
  Receipt Date: 20140519
  Transmission Date: 20141212
  Serious: No
  Sender: FDA-Public Use
  Company Number: US-AMGEN INC.-USASP2014033059

PATIENT
  Age: 60 Year
  Sex: Female

DRUGS (2)
  1. PROLIA [Suspect]
     Indication: OSTEOPOROSIS
     Dosage: UNK
     Route: 065
     Dates: start: 20131213
  2. VITAMINS                           /00067501/ [Concomitant]
     Route: 065

REACTIONS (5)
  - Anxiety [Unknown]
  - Increased appetite [Unknown]
  - Weight decreased [Unknown]
  - Stress [Unknown]
  - Ligament sprain [Unknown]
